FAERS Safety Report 5387470-X (Version None)
Quarter: 2007Q3

REPORT INFORMATION
  Report Type: 
  Country: None (occurrence: None)
  Receive Date: 20070716
  Receipt Date: 20070712
  Transmission Date: 20080115
  Serious: Yes (Other)
  Sender: FDA-Public Use
  Company Number: DE-BRISTOL-MYERS SQUIBB COMPANY-13845011

PATIENT

DRUGS (1)
  1. PRAVASTATIN SODIUM [Suspect]

REACTIONS (1)
  - MYASTHENIA GRAVIS [None]
